FAERS Safety Report 22065189 (Version 1)
Quarter: 2023Q1

REPORT INFORMATION
  Report Type: Spontaneous
  Country: US (occurrence: US)
  Receive Date: 20230306
  Receipt Date: 20230306
  Transmission Date: 20230418
  Serious: No
  Sender: FDA-Public Use
  Company Number: US-ABBVIE-4276402

PATIENT
  Sex: Female

DRUGS (1)
  1. SYNTHROID [Suspect]
     Active Substance: LEVOTHYROXINE SODIUM
     Indication: Hypothyroidism
     Route: 048

REACTIONS (6)
  - Malabsorption [Unknown]
  - Therapeutic product effect incomplete [Unknown]
  - Chronic gastritis [Unknown]
  - Pernicious anaemia [Unknown]
  - Achlorhydria [Unknown]
  - Chronic gastritis [Unknown]
